FAERS Safety Report 19144635 (Version 1)
Quarter: 2021Q2

REPORT INFORMATION
  Report Type: Spontaneous
  Country: US (occurrence: US)
  Receive Date: 20210416
  Receipt Date: 20210416
  Transmission Date: 20210717
  Serious: Yes (Hospitalization)
  Sender: FDA-Public Use
  Company Number: None

PATIENT
  Age: 58 Year
  Sex: Male
  Weight: 86.18 kg

DRUGS (2)
  1. BAMLANIVIMAB INJECTION [Suspect]
     Active Substance: BAMLANIVIMAB
     Indication: UPPER RESPIRATORY TRACT INFECTION
     Route: 042
     Dates: start: 20210318, end: 20210318
  2. ETESEVIMAB INJECTION [Suspect]
     Active Substance: ETESEVIMAB
     Route: 042
     Dates: start: 20210318, end: 20210318

REACTIONS (2)
  - Chest pain [None]
  - Gastrooesophageal reflux disease [None]

NARRATIVE: CASE EVENT DATE: 20210329
